FAERS Safety Report 19421927 (Version 6)
Quarter: 2022Q3

REPORT INFORMATION
  Report Type: Report from Study
  Country: BR (occurrence: BR)
  Receive Date: 20210616
  Receipt Date: 20220725
  Transmission Date: 20221027
  Serious: Yes (Death, Disabling)
  Sender: FDA-Public Use
  Company Number: NVSC2021BR124494

PATIENT
  Age: 67 Year
  Sex: Female
  Weight: 44 kg

DRUGS (2)
  1. CAPMATINIB [Suspect]
     Active Substance: CAPMATINIB
     Indication: Non-small cell lung cancer
     Dosage: 800 MG, BID
     Route: 048
     Dates: start: 20210503, end: 20210527
  2. CAPMATINIB [Suspect]
     Active Substance: CAPMATINIB
     Dosage: 400 MG, BID
     Route: 048

REACTIONS (10)
  - Pneumonitis [Fatal]
  - Dyspnoea [Fatal]
  - Cough [Fatal]
  - Lung opacity [Fatal]
  - Lung infiltration [Fatal]
  - Respiratory failure [Fatal]
  - Drug intolerance [Fatal]
  - Lung neoplasm malignant [Fatal]
  - Malignant neoplasm progression [Fatal]
  - Skin mass [Fatal]

NARRATIVE: CASE EVENT DATE: 20210520
